FAERS Safety Report 20637763 (Version 2)
Quarter: 2022Q1

REPORT INFORMATION
  Report Type: Spontaneous
  Country: US (occurrence: US)
  Receive Date: 20220325
  Receipt Date: 20220325
  Transmission Date: 20220423
  Serious: Yes (Other)
  Sender: FDA-Public Use
  Company Number: US-GILEAD-2022-0574608

PATIENT
  Age: 41 Year
  Sex: Male

DRUGS (2)
  1. BIKTARVY [Suspect]
     Active Substance: BICTEGRAVIR SODIUM\EMTRICITABINE\TENOFOVIR ALAFENAMIDE FUMARATE
     Indication: HIV infection
     Dosage: 1 PER DAY
     Route: 065
  2. LISINOPRIL [Concomitant]
     Active Substance: LISINOPRIL
     Dates: start: 20220306

REACTIONS (2)
  - Electric shock sensation [Not Recovered/Not Resolved]
  - Product use issue [Not Recovered/Not Resolved]

NARRATIVE: CASE EVENT DATE: 20220319
